FAERS Safety Report 25187811 (Version 1)
Quarter: 2025Q2

REPORT INFORMATION
  Report Type: Spontaneous
  Country: FR (occurrence: FR)
  Receive Date: 20250411
  Receipt Date: 20250411
  Transmission Date: 20250716
  Serious: Yes (Life-Threatening, Hospitalization)
  Sender: ACCORD
  Company Number: FR-Accord-478135

PATIENT

DRUGS (9)
  1. CISPLATIN [Suspect]
     Active Substance: CISPLATIN
     Indication: Gastrointestinal stromal tumour
     Dosage: RECEIVED 4 CYCLES
  2. ETOPOSIDE [Suspect]
     Active Substance: ETOPOSIDE
     Indication: Gastrointestinal stromal tumour
     Dosage: RECEIVED 4 CYCLES
  3. PEMBROLIZUMAB [Suspect]
     Active Substance: PEMBROLIZUMAB
     Indication: Gastrointestinal stromal tumour
     Dosage: RECEIVED 4 CYCLES
  4. PEMBROLIZUMAB [Suspect]
     Active Substance: PEMBROLIZUMAB
     Indication: Metastases to peritoneum
     Dosage: RECEIVED 4 CYCLES
  5. PEMBROLIZUMAB [Suspect]
     Active Substance: PEMBROLIZUMAB
     Indication: Metastases to liver
     Dosage: RECEIVED 4 CYCLES
  6. CISPLATIN [Suspect]
     Active Substance: CISPLATIN
     Indication: Metastases to peritoneum
     Dosage: RECEIVED 4 CYCLES
  7. CISPLATIN [Suspect]
     Active Substance: CISPLATIN
     Indication: Metastases to liver
     Dosage: RECEIVED 4 CYCLES
  8. ETOPOSIDE [Suspect]
     Active Substance: ETOPOSIDE
     Indication: Metastases to peritoneum
     Dosage: RECEIVED 4 CYCLES
  9. ETOPOSIDE [Suspect]
     Active Substance: ETOPOSIDE
     Indication: Metastases to liver
     Dosage: RECEIVED 4 CYCLES

REACTIONS (4)
  - Escherichia sepsis [Recovering/Resolving]
  - Klebsiella infection [Recovering/Resolving]
  - Urinary tract infection bacterial [Recovering/Resolving]
  - Off label use [Unknown]
